FAERS Safety Report 24237146 (Version 4)
Quarter: 2025Q2

REPORT INFORMATION
  Report Type: Report from Study
  Country: JP (occurrence: JP)
  Receive Date: 20240822
  Receipt Date: 20250618
  Transmission Date: 20250716
  Serious: Yes (Death)
  Sender: PFIZER
  Company Number: JP-PFIZER INC-202400239632

PATIENT
  Age: 73 Year
  Sex: Female
  Weight: 48 kg

DRUGS (8)
  1. ELRANATAMAB [Suspect]
     Active Substance: ELRANATAMAB
     Indication: Plasma cell myeloma
     Dates: start: 20240604
  2. ELRANATAMAB [Suspect]
     Active Substance: ELRANATAMAB
     Dates: start: 20240607
  3. ELRANATAMAB [Suspect]
     Active Substance: ELRANATAMAB
     Dates: start: 20240611
  4. ELRANATAMAB [Suspect]
     Active Substance: ELRANATAMAB
     Dates: start: 20240618
  5. ELRANATAMAB [Suspect]
     Active Substance: ELRANATAMAB
     Dates: start: 20240625
  6. ELRANATAMAB [Suspect]
     Active Substance: ELRANATAMAB
     Dates: start: 20240703
  7. ELRANATAMAB [Suspect]
     Active Substance: ELRANATAMAB
     Dates: start: 20240816, end: 20240819
  8. ELRANATAMAB [Suspect]
     Active Substance: ELRANATAMAB
     Dates: start: 20240823

REACTIONS (2)
  - Plasma cell myeloma [Fatal]
  - Neutrophil count decreased [Recovered/Resolved]

NARRATIVE: CASE EVENT DATE: 20240819
